FAERS Safety Report 8842594 (Version 2)
Quarter: 2012Q4

REPORT INFORMATION
  Report Type: 
  Country: US (occurrence: US)
  Receive Date: 20121016
  Receipt Date: 20121107
  Transmission Date: 20130627
  Serious: Yes (Other)
  Sender: FDA-Public Use
  Company Number: US-PFIZER INC-2012252254

PATIENT
  Age: 60 Year
  Sex: Male
  Weight: 117.91 kg

DRUGS (2)
  1. VIAGRA [Suspect]
     Indication: ERECTILE DYSFUNCTION
     Dosage: 100 mg, as needed
     Route: 048
     Dates: start: 2010, end: 2011
  2. LANTUS [Concomitant]
     Indication: DIABETES
     Dosage: UNK

REACTIONS (2)
  - Intervertebral disc disorder [Recovering/Resolving]
  - Back pain [Recovering/Resolving]
